FAERS Safety Report 9442849 (Version 2)
Quarter: 2013Q3

REPORT INFORMATION
  Report Type: Report from Study
  Country: US (occurrence: US)
  Receive Date: 20130806
  Receipt Date: 20130823
  Transmission Date: 20140515
  Serious: Yes (Other)
  Sender: FDA-Public Use
  Company Number: US-PFIZER INC-2013224185

PATIENT
  Age: 71 Year
  Sex: Female
  Weight: 95.69 kg

DRUGS (60)
  1. PF-04449913 [Suspect]
     Indication: ACUTE MYELOID LEUKAEMIA
     Dosage: 100 MG, ONCE DAILY CONTINUOUS
     Route: 048
     Dates: start: 20130729, end: 20130801
  2. CYTARABINE [Suspect]
     Indication: ACUTE MYELOID LEUKAEMIA
     Dosage: 20 MG, TWICE DAILY ON DAYS 1-10 OF EACH 28-DAY CYCLE
     Route: 058
     Dates: start: 20130727, end: 20130801
  3. DEMEROL [Concomitant]
     Indication: NECK PAIN
     Dosage: UNK
     Dates: start: 20130717, end: 20130717
  4. VALIUM [Concomitant]
     Indication: NECK PAIN
     Dosage: UNK
     Dates: start: 20130717, end: 20130717
  5. KENALOG [Concomitant]
     Indication: NECK PAIN
     Dosage: ONCE
     Route: 030
     Dates: start: 20130717, end: 20130717
  6. PYRIDOXINE [Concomitant]
     Indication: SUPPLEMENTATION THERAPY
     Dosage: 100 MG, 1X/DAY
     Route: 048
     Dates: end: 20130718
  7. POTASSIUM [Concomitant]
     Indication: PROPHYLAXIS
     Dosage: 40 MG, 1X/DAY
     Route: 048
     Dates: end: 20130718
  8. CALCIUM PHOSPHATE [Concomitant]
     Indication: SUPPLEMENTATION THERAPY
     Dosage: DAILY
     Route: 048
     Dates: end: 20130718
  9. CYANOCOBALAMIN [Concomitant]
     Indication: PROPHYLAXIS
     Dosage: 1000 UG, 1X/DAY
     Route: 048
     Dates: end: 20130718
  10. TRAMADOL [Concomitant]
     Indication: NECK PAIN
     Dosage: 50 MG, Q4H AS NEEDED
     Route: 048
     Dates: end: 20130718
  11. FUROSEMIDE [Concomitant]
     Indication: CARDIAC FAILURE
     Dosage: 20 MG, 1X/DAY
     Route: 048
     Dates: end: 20130718
  12. FUROSEMIDE [Concomitant]
     Indication: FLUID OVERLOAD
     Dosage: 20 MG, 1X/DAY
     Route: 042
     Dates: start: 20130721, end: 20130722
  13. FUROSEMIDE [Concomitant]
     Dosage: 40 MG, 1X/DAY
     Route: 042
     Dates: start: 20130723, end: 20130725
  14. FUROSEMIDE [Concomitant]
     Dosage: 40 MG, 2X/DAY
     Route: 042
     Dates: start: 20130726, end: 20130728
  15. FUROSEMIDE [Concomitant]
     Dosage: 20 MG, 2X/DAY
     Route: 042
     Dates: start: 20130728, end: 20130729
  16. FUROSEMIDE [Concomitant]
     Dosage: 20 MG, ONCE
     Route: 042
     Dates: start: 20130729, end: 20130729
  17. HEPARIN [Concomitant]
     Indication: PROPHYLAXIS
     Dosage: 5000 IU, 3X/DAY
     Route: 058
     Dates: start: 20130717, end: 20130718
  18. HEPARIN [Concomitant]
     Indication: FLUID REPLACEMENT
     Dosage: 4.3 - 38.5 ML, HOURLY
     Route: 042
     Dates: start: 20130720, end: 20130730
  19. HEPARIN [Concomitant]
     Dosage: 30 IU, QAM AND PRN
     Route: 042
     Dates: start: 20130724
  20. LISINOPRIL [Concomitant]
     Indication: HYPERTENSION
     Dosage: 5 MG, 1X/DAY
     Route: 048
     Dates: end: 20130718
  21. MORPHINE [Concomitant]
     Indication: NECK PAIN
     Dosage: 15 MG, Q4H AS NEEDED
     Route: 048
     Dates: start: 20130718, end: 20130719
  22. MORPHINE [Concomitant]
     Dosage: 30 MG, Q6H AS NEEDED
     Route: 048
     Dates: start: 20130719, end: 20130719
  23. MORPHINE [Concomitant]
     Dosage: MORPHINE CR 15 MG, Q12H
     Route: 048
     Dates: start: 20130719, end: 20130719
  24. MORPHINE [Concomitant]
     Dosage: 2-4 MG, AS NEEDED
     Route: 042
     Dates: start: 20130719, end: 20130719
  25. MORPHINE [Concomitant]
     Dosage: 15 MG, Q6H AS NEEDED
     Route: 048
     Dates: start: 20130725, end: 20130730
  26. NORMAL SALINE [Concomitant]
     Indication: FLUID REPLACEMENT
     Dosage: 1000 ML, ONCE
     Route: 042
     Dates: start: 20130718, end: 20130718
  27. NORMAL SALINE [Concomitant]
     Dosage: 125 ML, HOURLY
     Route: 042
     Dates: start: 20130719, end: 20130720
  28. NORMAL SALINE [Concomitant]
     Dosage: 75 ML, HOURLY
     Route: 042
     Dates: start: 20130720, end: 20130722
  29. NORMAL SALINE [Concomitant]
     Dosage: 10 ML, DAILY
     Route: 042
     Dates: start: 20130724
  30. WARFARIN [Concomitant]
     Indication: PROPHYLAXIS
     Dosage: 5 MG, SINGLE
     Route: 048
     Dates: end: 20130719
  31. WARFARIN [Concomitant]
     Dosage: 5 MG, 1X/DAY
     Route: 048
     Dates: start: 20130724, end: 20130727
  32. WARFARIN [Concomitant]
     Dosage: 7.5 MG, 1X/DAY
     Route: 048
     Dates: start: 20130728, end: 20130729
  33. NICOTINE [Concomitant]
     Indication: SMOKING CESSATION THERAPY
     Dosage: 14 MG, 1X/DAY
     Route: 061
     Dates: start: 20130719
  34. CEFTRIAXONE [Concomitant]
     Dosage: 1 G, 1X/DAY
     Route: 042
     Dates: start: 20130719, end: 20130720
  35. CYCLOBENZAPRINE [Concomitant]
     Indication: NECK PAIN
     Dosage: 10 MG, TID AS NEEDED
     Route: 048
     Dates: start: 20130719, end: 20130720
  36. CYCLOBENZAPRINE [Concomitant]
     Dosage: 5 MG, ONCE
     Route: 042
     Dates: start: 20130723, end: 20130723
  37. DOCUSATE SODIUM [Concomitant]
     Indication: CONSTIPATION
     Dosage: 100 MG, 2X/DAY
     Route: 048
     Dates: start: 20130719
  38. OXYCODONE [Concomitant]
     Indication: NECK PAIN
     Dosage: 5 MG, Q6H AS NEEDED
     Route: 048
     Dates: start: 20130719, end: 20130719
  39. SENNA [Concomitant]
     Indication: CONSTIPATION
     Dosage: 17.2 MG, 1X/DAY
     Route: 048
     Dates: start: 20130719
  40. AZITHROMYCIN [Concomitant]
     Dosage: 500 MG, 1X/DAY
     Route: 048
     Dates: start: 20130720, end: 20130725
  41. CEFEPIME [Concomitant]
     Dosage: 1 G, 3X/DAY
     Route: 042
     Dates: start: 20130720, end: 20130730
  42. HYDROMORPHONE [Concomitant]
     Indication: NECK PAIN
     Dosage: PCA, AS NEEDED
     Route: 042
     Dates: start: 20130720, end: 20130724
  43. HYDROMORPHONE [Concomitant]
     Dosage: 1 MG, Q4H AS NEEDED
     Route: 048
     Dates: start: 20130724, end: 20130725
  44. LIDOCAINE [Concomitant]
     Indication: NECK PAIN
     Dosage: 700 MG, 1X/DAY
     Route: 061
     Dates: start: 20130720
  45. LIDOCAINE [Concomitant]
     Dosage: 10 ML, ONCE; ROUTE - ID
     Route: 023
     Dates: start: 20130721, end: 20130721
  46. LORAZEPAM [Concomitant]
     Indication: ANXIETY
     Dosage: 0.5 - 1.0 MG, AS NEEDED
     Route: 048
     Dates: start: 20130720
  47. LORAZEPAM [Concomitant]
     Dosage: 0.5 MG, SINGLE
     Route: 042
     Dates: start: 20130721, end: 20130721
  48. CALCIUM GLUCONATE [Concomitant]
     Indication: HYPOCALCAEMIA
     Dosage: 1 G, SINGLE
     Route: 042
     Dates: start: 20130721, end: 20130721
  49. POTASSIUM CHLORIDE [Concomitant]
     Indication: HYPOKALAEMIA
     Dosage: 10 MEQ, SINGLE
     Route: 048
     Dates: start: 20130721, end: 20130721
  50. POTASSIUM CHLORIDE [Concomitant]
     Dosage: 20 MEQ, SINGLE
     Route: 048
     Dates: start: 20130728, end: 20130728
  51. MAGNESIUM OXIDE [Concomitant]
     Indication: HYPOMAGNESAEMIA
     Dosage: 400 MG, DAILY
     Route: 048
     Dates: start: 20130722, end: 20130730
  52. METOPROLOL TARTRATE [Concomitant]
     Indication: ATRIAL FIBRILLATION
     Dosage: 25 MG, 2X/DAY
     Route: 048
     Dates: start: 20130722, end: 20130729
  53. POLYETHYLENE GLYCOL [Concomitant]
     Indication: CONSTIPATION
     Dosage: 17 G, SINGLE
     Route: 048
     Dates: start: 20130722, end: 20130722
  54. VANCOMYCIN [Concomitant]
     Dosage: 1250 MG, 2X/DAY
     Route: 042
     Dates: start: 20130722, end: 20130723
  55. MAGNESIUM SULFATE [Concomitant]
     Indication: HYPOMAGNESAEMIA
     Dosage: 2 G, SINGLE
     Route: 042
     Dates: start: 20130723, end: 20130723
  56. ACETAMINOPHEN [Concomitant]
     Indication: PROPHYLAXIS
     Dosage: 650 MG, SINGLE
     Route: 048
     Dates: start: 20130725, end: 20130725
  57. IPRATROPIUM/ ALBUTEROL [Concomitant]
     Indication: DYSPNOEA
     Dosage: 0.5/ 3 MG, AS NEEDED, ROUTE: INH
     Route: 055
     Dates: start: 20130725
  58. LACTULOSE [Concomitant]
     Indication: CONSTIPATION
     Dosage: 30 G, SINGLE
     Route: 048
     Dates: start: 20130727, end: 20130727
  59. NYSTATIN [Concomitant]
     Indication: CANDIDA INFECTION
     Dosage: 500000 IU, 4X/DAY
     Route: 048
     Dates: start: 20130727
  60. BUDESONIDE/FORMOTEROL FUMARATE [Concomitant]
     Indication: DYSPNOEA
     Dosage: 320/ 9 MCG, 2X/DAY; ROUTE -INH
     Route: 055
     Dates: start: 20130729

REACTIONS (1)
  - Hyperuricaemia [Recovered/Resolved]
